FAERS Safety Report 6028322-1 (Version None)
Quarter: 2009Q1

REPORT INFORMATION
  Report Type: 
  Country: None (occurrence: None)
  Receive Date: 20090106
  Receipt Date: 20090103
  Transmission Date: 20090719
  Serious: Yes (Death)
  Sender: FDA-Public Use
  Company Number: US-PFIZER INC-2009150499

PATIENT
  Sex: Male

DRUGS (2)
  1. CELEBREX [Suspect]
  2. NAPROXEN [Concomitant]

REACTIONS (1)
  - DEATH [None]
